FAERS Safety Report 17731634 (Version 1)
Quarter: 2020Q2

REPORT INFORMATION
  Report Type: Spontaneous
  Country: SE (occurrence: SE)
  Receive Date: 20200501
  Receipt Date: 20200501
  Transmission Date: 20200714
  Serious: Yes (Other)
  Sender: FDA-Public Use
  Company Number: SE-TEVA-2020-SE-1228413

PATIENT
  Age: 28 Year
  Sex: Female
  Weight: 64 kg

DRUGS (2)
  1. ISOTRETINOIN. [Suspect]
     Active Substance: ISOTRETINOIN
     Indication: ACNE
     Dosage: 40 MILLIGRAM DAILY;
     Dates: start: 201910
  2. ISOTRETINOIN. [Suspect]
     Active Substance: ISOTRETINOIN
     Dosage: 20 MILLIGRAM DAILY;
     Dates: start: 201910

REACTIONS (12)
  - Dry eye [Not Recovered/Not Resolved]
  - Chromaturia [Not Recovered/Not Resolved]
  - Myopia [Not Recovered/Not Resolved]
  - Meibomian gland dysfunction [Not Recovered/Not Resolved]
  - Vision blurred [Not Recovered/Not Resolved]
  - Eye infection [Not Recovered/Not Resolved]
  - Night blindness [Not Recovered/Not Resolved]
  - Astigmatism [Not Recovered/Not Resolved]
  - Hordeolum [Not Recovered/Not Resolved]
  - Tinnitus [Not Recovered/Not Resolved]
  - Blepharitis [Not Recovered/Not Resolved]
  - Dry mouth [Not Recovered/Not Resolved]

NARRATIVE: CASE EVENT DATE: 201908
